FAERS Safety Report 6895992-5 (Version None)
Quarter: 2010Q3

REPORT INFORMATION
  Report Type: 
  Country: None (occurrence: None)
  Receive Date: 20100728
  Receipt Date: 20100719
  Transmission Date: 20110219
  Serious: Yes (Hospitalization)
  Sender: FDA-Public Use
  Company Number: TPA2010A01442

PATIENT
  Age: 57 Year
  Sex: Female
  Weight: 86.2742 kg

DRUGS (10)
  1. PIOGLITAZONE HCL [Suspect]
     Indication: TYPE 2 DIABETES MELLITUS
     Dosage: 30 MG, 1 IN 1 D, ORAL
     Route: 048
     Dates: start: 20091125
  2. UNKNOWN INVESTIGATIONAL DRUG (INVESTIGATIONAL DRUG) [Suspect]
     Indication: TYPE 2 DIABETES MELLITUS
  3. LISINOPRIL/HCTZ (HYDROCHLOROTHIAZIDE, LISINOPRIL) [Concomitant]
  4. SYNTHROID [Concomitant]
  5. CRESTOR [Concomitant]
  6. MULTIVITAMIN [Concomitant]
  7. TOPAMAX [Concomitant]
  8. IMITREX [Concomitant]
  9. LIPITOR [Concomitant]
  10. LEVOTHYROXINE SODIUM [Concomitant]

REACTIONS (2)
  - COLON ADENOMA [None]
  - COLONIC POLYP [None]
